FAERS Safety Report 8335493-0 (Version None)
Quarter: 2012Q2

REPORT INFORMATION
  Report Type: 
  Country: None (occurrence: None)
  Receive Date: 20120503
  Receipt Date: 20120420
  Transmission Date: 20120825
  Serious: Yes (Death, Hospitalization)
  Sender: FDA-Public Use
  Company Number: PT-BAXTER-2012BAX002930

PATIENT
  Sex: Female

DRUGS (2)
  1. EXTRANEAL [Suspect]
     Route: 033
     Dates: start: 20091221
  2. PHYSIONEAL 40 GLUCOSE 1,36% P/V / 13,6 MG/ML [Suspect]
     Route: 033
     Dates: start: 20091221

REACTIONS (1)
  - CEREBROVASCULAR ACCIDENT [None]
